FAERS Safety Report 9778447 (Version 1)
Quarter: 2013Q4

REPORT INFORMATION
  Report Type: Spontaneous
  Country: US (occurrence: None)
  Receive Date: 20131220
  Receipt Date: 20131220
  Transmission Date: 20140711
  Serious: Yes (Other)
  Sender: FDA-Public Use
  Company Number: None

PATIENT
  Age: 30 Year
  Sex: Female

DRUGS (2)
  1. EXJADE 500MG NOVARTIS [Suspect]
     Indication: SICKLE CELL ANAEMIA
     Route: 048
     Dates: start: 20120611, end: 20131101
  2. EXJADE 250MG NOVARTIS [Suspect]

REACTIONS (2)
  - Pregnancy [None]
  - Exposure during pregnancy [None]
